FAERS Safety Report 11231380 (Version 1)
Quarter: 2015Q3

REPORT INFORMATION
  Report Type: Spontaneous
  Country: SE (occurrence: SE)
  Receive Date: 20150701
  Receipt Date: 20150701
  Transmission Date: 20151125
  Serious: Yes (Other)
  Sender: FDA-Public Use
  Company Number: SE-OTSUKA-2015_002521

PATIENT
  Age: 29 Year
  Sex: Female

DRUGS (6)
  1. ANTITHYMOCYTE IMMUNOGLOBULIN [Concomitant]
     Active Substance: THYMOCYTE IMMUNE GLOBULIN NOS
     Indication: IMMUNOSUPPRESSION
     Dosage: 8 MG/KG, UNK
     Route: 065
  2. METHOTREXATE SODIUM. [Concomitant]
     Active Substance: METHOTREXATE SODIUM
     Indication: IMMUNOSUPPRESSION
  3. CYCLOPHOSPHAMIDE. [Suspect]
     Active Substance: CYCLOPHOSPHAMIDE
     Indication: STEM CELL TRANSPLANT
     Dosage: 200 MG/KG, UNK
     Route: 065
  4. CYCLOSPORINE. [Concomitant]
     Active Substance: CYCLOSPORINE
     Indication: IMMUNOSUPPRESSION
     Route: 065
  5. GARDASIL [Concomitant]
     Active Substance: HUMAN PAPILLOMAVIRUS QUADRIVALENT (TYPES 6, 11, 16, AND 18) VACCINE, RECOMBINANT
     Indication: PRODUCT USED FOR UNKNOWN INDICATION
     Route: 065
  6. BUSULFEX [Suspect]
     Active Substance: BUSULFAN
     Indication: STEM CELL TRANSPLANT
     Dosage: 16 MG/KG, UNK
     Route: 065

REACTIONS (8)
  - Cystitis haemorrhagic [Unknown]
  - Haematemesis [Unknown]
  - Hepatotoxicity [Unknown]
  - Ophthalmic herpes zoster [Unknown]
  - Respiratory syncytial virus infection [Unknown]
  - Melaena [Unknown]
  - Vulval haemorrhage [Recovered/Resolved]
  - Dyspnoea [Unknown]
